FAERS Safety Report 9067218 (Version 1)
Quarter: 2013Q1

REPORT INFORMATION
  Report Type: Report from Study
  Country: US (occurrence: US)
  Receive Date: 20130131
  Receipt Date: 20130131
  Transmission Date: 20140127
  Serious: No
  Sender: FDA-Public Use
  Company Number: US-ABBOTT-12P-163-0999921-00

PATIENT
  Age: 64 Year
  Sex: Female

DRUGS (5)
  1. HUMIRA [Suspect]
     Indication: RHEUMATOID ARTHRITIS
     Dates: start: 201012, end: 201206
  2. CETIRIZINE [Concomitant]
     Indication: PRODUCT USED FOR UNKNOWN INDICATION
  3. MULTI-VITAMIN [Concomitant]
     Indication: PRODUCT USED FOR UNKNOWN INDICATION
  4. VIACTIV [Concomitant]
     Indication: PRODUCT USED FOR UNKNOWN INDICATION
  5. CRANBERRY [Concomitant]
     Indication: PRODUCT USED FOR UNKNOWN INDICATION

REACTIONS (10)
  - Tooth extraction [Unknown]
  - Nasopharyngitis [Unknown]
  - Bronchitis [Unknown]
  - Cough [Unknown]
  - Herpes zoster [Unknown]
  - Pain [Unknown]
  - Rash [Unknown]
  - Nodule [Unknown]
  - Rash pruritic [Unknown]
  - Musculoskeletal stiffness [Unknown]
